FAERS Safety Report 9227149 (Version 1)
Quarter: 2013Q1

REPORT INFORMATION
  Report Type: Spontaneous
  Country: US (occurrence: US)
  Receive Date: 20120914
  Receipt Date: 20120914
  Transmission Date: 20140127
  Serious: Yes (Other)
  Sender: FDA-Public Use
  Company Number: JPI-P-019176

PATIENT
  Age: 40 Year
  Sex: Male
  Weight: 112.49 kg

DRUGS (5)
  1. XYREM (500 MG/ML SOLUTION)(SODIUM OXYBATE) [Suspect]
     Indication: CATAPLEXY
     Dosage: 2 DOSES OF 2.25 GM TAKEN AT BEDTIME/NIGHTLY.
     Route: 048
     Dates: start: 20111222, end: 20111229
  2. ALPRAZOLAM [Suspect]
     Indication: PANIC ATTACK
     Route: 048
     Dates: start: 2011
  3. ALPRAZOLAM [Suspect]
     Indication: ANXIETY
     Route: 048
     Dates: start: 2011
  4. PAROXETINE HYDROCHLORIDE [Suspect]
     Indication: DEPRESSION
     Route: 048
     Dates: start: 20111222
  5. PAROXETINE HYDROCHLORIDE [Suspect]
     Indication: SUICIDAL IDEATION
     Route: 048
     Dates: start: 20111222

REACTIONS (4)
  - Suicidal ideation [None]
  - Condition aggravated [None]
  - Fear [None]
  - Gait disturbance [None]
